FAERS Safety Report 9922445 (Version 1)
Quarter: 2014Q1

REPORT INFORMATION
  Report Type: Spontaneous
  Country: FR (occurrence: FR)
  Receive Date: 20140225
  Receipt Date: 20140225
  Transmission Date: 20141002
  Serious: Yes (Hospitalization)
  Sender: FDA-Public Use
  Company Number: FR-PFIZER INC-2014046976

PATIENT
  Age: 4 Week
  Sex: Female

DRUGS (2)
  1. TRIFLUCAN [Suspect]
     Indication: CANDIDA INFECTION
     Dosage: LOADING DOSE
     Route: 063
     Dates: start: 20140127, end: 20140127
  2. TRIFLUCAN [Suspect]
     Dosage: 100 MG, 2X/DAY
     Route: 063
     Dates: start: 20140128, end: 20140128

REACTIONS (3)
  - Exposure during breast feeding [Recovered/Resolved]
  - Eyelid oedema [Recovered/Resolved]
  - Rash [Recovered/Resolved]
